FAERS Safety Report 8904386 (Version 1)
Quarter: 2012Q4

REPORT INFORMATION
  Report Type: Report from Study
  Country: BR (occurrence: BR)
  Receive Date: 20121113
  Receipt Date: 20121113
  Transmission Date: 20130627
  Serious: Yes (Other)
  Sender: FDA-Public Use
  Company Number: BR-US-EMD SERONO, INC.-7173014

PATIENT
  Sex: Male

DRUGS (1)
  1. REBIF [Suspect]
     Indication: PRODUCT USED FOR UNKNOWN INDICATION
     Dates: start: 2005

REACTIONS (8)
  - Choking [Unknown]
  - Condition aggravated [Unknown]
  - Asthenia [Unknown]
  - Urinary incontinence [Unknown]
  - Speech disorder [Unknown]
  - Dysphagia [Unknown]
  - Balance disorder [Unknown]
  - Dysstasia [Unknown]
